FAERS Safety Report 16575350 (Version 1)
Quarter: 2019Q3

REPORT INFORMATION
  Report Type: Spontaneous
  Country: US (occurrence: US)
  Receive Date: 20190716
  Receipt Date: 20190716
  Transmission Date: 20191004
  Serious: Yes (Other)
  Sender: FDA-Public Use
  Company Number: US-AUROBINDO-AUR-APL-2019-038832

PATIENT

DRUGS (3)
  1. CLOMIFENE [Suspect]
     Active Substance: CLOMIPHENE
     Indication: MENSTRUATION IRREGULAR
     Dosage: UNK
     Route: 065
  2. DEXAMETHASONE. [Suspect]
     Active Substance: DEXAMETHASONE
     Indication: MENSTRUATION IRREGULAR
     Dosage: UNK
     Route: 065
  3. CLOMIFENE [Suspect]
     Active Substance: CLOMIPHENE
     Indication: INFERTILITY

REACTIONS (1)
  - Weight increased [Unknown]
